FAERS Safety Report 4535303-3 (Version None)
Quarter: 2004Q4

REPORT INFORMATION
  Report Type: 
  Country: None (occurrence: None)
  Receive Date: 20041214
  Receipt Date: 20040917
  Transmission Date: 20050328
  Serious: No
  Sender: FDA-Public Use
  Company Number: 2004236814US

PATIENT
  Age: 69 Year
  Sex: Male
  Weight: 80.3 kg

DRUGS (8)
  1. BEXTRA [Suspect]
     Indication: ARTHRALGIA
     Dosage: 10 MG, QD
     Dates: start: 20040723, end: 20040914
  2. CARDIZEM [Concomitant]
  3. COUMADIN [Concomitant]
  4. LIPITOR [Concomitant]
  5. LEVOTHYROXINE SODIUM [Concomitant]
  6. DITROPAN [Concomitant]
  7. TERAZOSIN [Concomitant]
  8. PROSCAR [Concomitant]

REACTIONS (1)
  - BLISTER [None]
